FAERS Safety Report 21715964 (Version 1)
Quarter: 2022Q4

REPORT INFORMATION
  Report Type: Spontaneous
  Country: US (occurrence: None)
  Receive Date: 20221209
  Receipt Date: 20221209
  Transmission Date: 20230113
  Serious: Yes (Other)
  Sender: FDA-Public Use
  Company Number: None

PATIENT
  Age: 43 Year
  Sex: Female

DRUGS (6)
  1. BOTOX [Suspect]
     Active Substance: ONABOTULINUMTOXINA
     Indication: Migraine
     Dosage: 200 UNIT INJECTION??TO BE ADMINISTERED IN PRESCRIBERS OFFICE 155 UNITS IN THE MUSCLE TO HEAD AND NEC
     Route: 030
     Dates: start: 20210903
  2. ADVIL TAB [Concomitant]
  3. CYMBALTA CAP [Concomitant]
  4. DRAMAMINE TAB [Concomitant]
  5. RIZATRIPTAN TAB [Concomitant]
  6. TYLENOL TAB [Concomitant]

REACTIONS (2)
  - Thermal burn [None]
  - Accident [None]

NARRATIVE: CASE EVENT DATE: 20221001
